FAERS Safety Report 4891483-1 (Version None)
Quarter: 2006Q1

REPORT INFORMATION
  Report Type: 
  Country: None (occurrence: None)
  Receive Date: 20060125
  Receipt Date: 20060120
  Transmission Date: 20060701
  Serious: Yes (Hospitalization)
  Sender: FDA-Public Use
  Company Number: US-MERCK-0601USA02562

PATIENT
  Age: 64 Year
  Sex: Female

DRUGS (4)
  1. FOSAMAX [Suspect]
     Route: 048
     Dates: end: 20010101
  2. NEXIUM [Concomitant]
     Route: 065
  3. WARFARIN [Concomitant]
     Route: 065
  4. ZYRTEC [Concomitant]
     Route: 065

REACTIONS (3)
  - CEREBROVASCULAR ACCIDENT [None]
  - DYSPEPSIA [None]
  - DYSPHAGIA [None]
